FAERS Safety Report 8018238-3 (Version None)
Quarter: 2012Q1

REPORT INFORMATION
  Report Type: 
  Country: None (occurrence: None)
  Receive Date: 20120103
  Receipt Date: 20111229
  Transmission Date: 20120608
  Serious: Yes (Other)
  Sender: FDA-Public Use
  Company Number: US-BAYER-2011-100282

PATIENT
  Age: 34 Year
  Sex: Female
  Weight: 99.773 kg

DRUGS (1)
  1. MIRENA [Suspect]
     Dosage: UNK
     Route: 015
     Dates: end: 20111021

REACTIONS (3)
  - GENITAL HAEMORRHAGE [None]
  - PELVIC PAIN [None]
  - DEVICE DISLOCATION [None]
